FAERS Safety Report 9791921 (Version 2)
Quarter: 2014Q1

REPORT INFORMATION
  Report Type: Spontaneous
  Country: US (occurrence: US)
  Receive Date: 20140102
  Receipt Date: 20140213
  Transmission Date: 20141002
  Serious: Yes (Other)
  Sender: FDA-Public Use
  Company Number: US-PFIZER INC-2013373341

PATIENT
  Age: 71 Year
  Sex: Male

DRUGS (1)
  1. SUTENT [Suspect]
     Indication: CHEMOTHERAPY
     Dosage: 50 MG, 1X/DAY
     Route: 048
     Dates: start: 20131122

REACTIONS (3)
  - Dysgeusia [Unknown]
  - Oral pain [Unknown]
  - Fatigue [Unknown]
